FAERS Safety Report 15052842 (Version 2)
Quarter: 2018Q3

REPORT INFORMATION
  Report Type: Spontaneous
  Country: DE (occurrence: DE)
  Receive Date: 20180622
  Receipt Date: 20180903
  Transmission Date: 20181010
  Serious: Yes (Other)
  Sender: FDA-Public Use
  Company Number: DE-PFIZER INC-2018247905

PATIENT
  Sex: Female

DRUGS (1)
  1. LANTAREL [Suspect]
     Active Substance: METHOTREXATE SODIUM
     Dosage: UNK
     Dates: start: 201709

REACTIONS (5)
  - Polyneuropathy [Unknown]
  - Gait disturbance [Unknown]
  - Pain [Unknown]
  - Nerve injury [Unknown]
  - Arterial occlusive disease [Unknown]
